FAERS Safety Report 8398975-1 (Version None)
Quarter: 2012Q2

REPORT INFORMATION
  Report Type: 
  Country: None (occurrence: None)
  Receive Date: 20120531
  Receipt Date: 20120521
  Transmission Date: 20120825
  Serious: Yes (Life-Threatening)
  Sender: FDA-Public Use
  Company Number: JP-BAYER-2012-037134

PATIENT
  Age: 5 Month
  Sex: Female

DRUGS (9)
  1. ASPIRIN [Suspect]
     Indication: THROMBOSIS PROPHYLAXIS
     Dosage: DAILY DOSE 20 MG
     Route: 048
     Dates: start: 20111206, end: 20111207
  2. DOPAMINE HCL [Suspect]
     Indication: CARDIAC FAILURE
     Dosage: UNK
     Route: 042
     Dates: start: 20111205, end: 20111207
  3. PRECEDEX [Suspect]
     Indication: SEDATION
     Dosage: UNK
     Route: 042
     Dates: start: 20111205
  4. ALDACTONE [Suspect]
     Indication: CARDIAC FAILURE
     Dosage: DAILY DOSE 15 MG
     Route: 048
     Dates: start: 20111206
  5. MIDAZOLAM HCL [Suspect]
     Indication: SEDATION
     Dosage: UNK
     Route: 042
     Dates: start: 20111205
  6. LASIX [Suspect]
     Indication: CARDIAC FAILURE
     Route: 048
     Dates: start: 20111206
  7. HERBAL PREPARATION [Suspect]
     Dosage: UNK
     Route: 048
  8. HEPARIN [Suspect]
     Indication: THROMBOSIS PROPHYLAXIS
     Dosage: UNK
     Route: 042
     Dates: start: 20111205
  9. ACETAMINOPHEN [Suspect]
     Dosage: UNK
     Route: 048

REACTIONS (1)
  - HEPATITIS FULMINANT [None]
